FAERS Safety Report 25908942 (Version 1)
Quarter: 2025Q4

REPORT INFORMATION
  Report Type: Spontaneous
  Country: US (occurrence: US)
  Receive Date: 20251011
  Receipt Date: 20251011
  Transmission Date: 20260119
  Serious: Yes (Other)
  Sender: MACLEODS
  Company Number: US-MACLEODS PHARMA-MAC2025055742

PATIENT

DRUGS (4)
  1. DOLUTEGRAVIR [Suspect]
     Active Substance: DOLUTEGRAVIR
     Indication: Infection
     Route: 065
  2. METFORMIN [Suspect]
     Active Substance: METFORMIN HYDROCHLORIDE
     Indication: Blood glucose
     Route: 065
     Dates: start: 201808
  3. TENOFOVIR [Concomitant]
     Active Substance: TENOFOVIR
     Indication: Product used for unknown indication
     Route: 065
     Dates: start: 201806
  4. EMTRICITABINE [Concomitant]
     Active Substance: EMTRICITABINE
     Indication: Product used for unknown indication
     Route: 065
     Dates: start: 201806

REACTIONS (4)
  - Diabetes mellitus [Unknown]
  - Shock [Unknown]
  - Hyperglycaemic hyperosmolar nonketotic syndrome [Unknown]
  - Mental status changes [Unknown]
